FAERS Safety Report 13794540 (Version 1)
Quarter: 2017Q3

REPORT INFORMATION
  Report Type: Spontaneous
  Country: US (occurrence: US)
  Receive Date: 20170726
  Receipt Date: 20170726
  Transmission Date: 20171127
  Serious: No
  Sender: FDA-Public Use
  Company Number: US-PFIZER INC-2017322709

PATIENT
  Age: 66 Year
  Sex: Female
  Weight: 114.74 kg

DRUGS (1)
  1. SUTENT [Suspect]
     Active Substance: SUNITINIB MALATE
     Indication: RENAL CELL CARCINOMA
     Dosage: 37.5 MG, DAILY (EVERY 28 DAYS)
     Route: 048
     Dates: start: 20170718

REACTIONS (1)
  - Headache [Unknown]
